FAERS Safety Report 21205505 (Version 2)
Quarter: 2022Q3

REPORT INFORMATION
  Report Type: Spontaneous
  Country: US (occurrence: US)
  Receive Date: 20220812
  Receipt Date: 20220812
  Transmission Date: 20221027
  Serious: Yes (Hospitalization)
  Sender: FDA-Public Use
  Company Number: US-PFIZER INC-PV202200040688

PATIENT
  Sex: Male

DRUGS (3)
  1. DEXTROSE [Suspect]
     Active Substance: DEXTROSE
     Dosage: 50 ML
  2. WATER [Suspect]
     Active Substance: WATER
     Dosage: 1000 ML
  3. KENALOG [Suspect]
     Active Substance: TRIAMCINOLONE ACETONIDE
     Dosage: 10 MG/ML

REACTIONS (4)
  - Candida infection [Unknown]
  - Periarthritis [Unknown]
  - Drug hypersensitivity [Unknown]
  - Joint swelling [Unknown]

NARRATIVE: CASE EVENT DATE: 20220201
